FAERS Safety Report 18156672 (Version 1)
Quarter: 2020Q3

REPORT INFORMATION
  Report Type: Spontaneous
  Country: AU (occurrence: AU)
  Receive Date: 20200817
  Receipt Date: 20200817
  Transmission Date: 20201103
  Serious: Yes (Other)
  Sender: FDA-Public Use
  Company Number: AU-GILEAD-2020-0489607

PATIENT
  Sex: Male

DRUGS (3)
  1. TETRABENAZINE. [Concomitant]
     Active Substance: TETRABENAZINE
  2. LURASIDONE [Concomitant]
     Active Substance: LURASIDONE
  3. EPCLUSA [Suspect]
     Active Substance: SOFOSBUVIR\VELPATASVIR
     Indication: CHRONIC HEPATITIS C
     Dosage: UNK
     Route: 065
     Dates: start: 2017

REACTIONS (1)
  - Chronic hepatitis C [Not Recovered/Not Resolved]
